FAERS Safety Report 12676269 (Version 1)
Quarter: 2016Q3

REPORT INFORMATION
  Report Type: Report from Study
  Country: US (occurrence: US)
  Receive Date: 20160823
  Receipt Date: 20160823
  Transmission Date: 20161109
  Serious: No
  Sender: FDA-Public Use
  Company Number: US-AMGEN-USASL2016106023

PATIENT
  Age: 69 Year

DRUGS (1)
  1. ENBREL [Suspect]
     Active Substance: ETANERCEPT
     Indication: RHEUMATOID ARTHRITIS
     Dosage: UNK
     Route: 065

REACTIONS (6)
  - Injection site haemorrhage [Unknown]
  - Injection site pain [Unknown]
  - Trigger finger [Unknown]
  - Injection site pruritus [Unknown]
  - Injection site swelling [Unknown]
  - Injection site bruising [Unknown]
